FAERS Safety Report 19413569 (Version 1)
Quarter: 2021Q2

REPORT INFORMATION
  Report Type: Spontaneous
  Country: FR (occurrence: FR)
  Receive Date: 20210615
  Receipt Date: 20210615
  Transmission Date: 20210717
  Serious: Yes (Death)
  Sender: FDA-Public Use
  Company Number: FR-SUN PHARMACEUTICAL INDUSTRIES LTD-2021RR-300642

PATIENT
  Age: 84 Year
  Sex: Male
  Weight: 89 kg

DRUGS (1)
  1. GEMCITABINE. [Suspect]
     Active Substance: GEMCITABINE
     Indication: TRANSITIONAL CELL CARCINOMA
     Dosage: 1000 MILLIGRAM/SQ. METER, UNK
     Route: 042
     Dates: start: 20200907, end: 20201123

REACTIONS (1)
  - Ischaemic hepatitis [Fatal]

NARRATIVE: CASE EVENT DATE: 202012
